FAERS Safety Report 7386674-4 (Version None)
Quarter: 2011Q1

REPORT INFORMATION
  Report Type: 
  Country: None (occurrence: None)
  Receive Date: 20110331
  Receipt Date: 20110321
  Transmission Date: 20110831
  Serious: Yes (Disabling, Other)
  Sender: FDA-Public Use
  Company Number: US-TEVA-272760USA

PATIENT
  Age: 58 Year
  Sex: Female

DRUGS (2)
  1. PREDNISONE [Suspect]
     Route: 048
  2. METHYLPREDNISOLONE TABLET 4MG [Suspect]
     Route: 042

REACTIONS (3)
  - PARAPLEGIA [None]
  - ARTERIOVENOUS FISTULA [None]
  - MUSCULAR WEAKNESS [None]
